FAERS Safety Report 12188261 (Version 1)
Quarter: 2016Q1

REPORT INFORMATION
  Report Type: Spontaneous
  Country: US (occurrence: None)
  Receive Date: 20160316
  Receipt Date: 20160316
  Transmission Date: 20160526
  Serious: Yes (Hospitalization)
  Sender: FDA-Public Use
  Company Number: US-ALSI-201600052

PATIENT
  Age: 62 Year
  Sex: Male

DRUGS (1)
  1. OXYGEN. [Suspect]
     Active Substance: OXYGEN
     Indication: CHRONIC OBSTRUCTIVE PULMONARY DISEASE
     Dosage: 21 OUNCE A MINUTE RESPIRATORY
     Route: 055

REACTIONS (6)
  - Lip oedema [None]
  - Intentional product misuse [None]
  - Injury [None]
  - Thermal burn [None]
  - Blood pressure increased [None]
  - Facial pain [None]
